FAERS Safety Report 20634452 (Version 1)
Quarter: 2022Q1

REPORT INFORMATION
  Report Type: Spontaneous
  Country: US (occurrence: US)
  Receive Date: 20220325
  Receipt Date: 20220325
  Transmission Date: 20220423
  Serious: No
  Sender: FDA-Public Use
  Company Number: US-JNJFOC-20220340291

PATIENT

DRUGS (1)
  1. INVEGA [Suspect]
     Active Substance: PALIPERIDONE
     Indication: Schizophrenia
     Route: 048

REACTIONS (6)
  - Loss of libido [Unknown]
  - Ejaculation failure [Unknown]
  - Vision blurred [Unknown]
  - Weight increased [Unknown]
  - Depression [Unknown]
  - Asthenia [Unknown]
